FAERS Safety Report 8268118-3 (Version None)
Quarter: 2012Q2

REPORT INFORMATION
  Report Type: 
  Country: None (occurrence: None)
  Receive Date: 20120409
  Receipt Date: 20120402
  Transmission Date: 20120825
  Serious: Yes (Death, Other)
  Sender: FDA-Public Use
  Company Number: CA-ELI_LILLY_AND_COMPANY-CA201204000422

PATIENT
  Sex: Female

DRUGS (9)
  1. ADCIRCA [Suspect]
     Indication: PULMONARY ARTERIAL HYPERTENSION
     Dosage: 10 MG, QD
     Route: 048
  2. ADCIRCA [Suspect]
     Dosage: 10 MG, QID
  3. LANTUS [Concomitant]
  4. GLICLAZIDE [Concomitant]
     Dosage: 160 MG, BID
  5. CRESTOR [Concomitant]
     Dosage: 10 MG, QD
  6. POTASSIUM [Concomitant]
  7. FUROSEMIDE [Concomitant]
     Dosage: 40 MG, QD
  8. SYMBICORT [Concomitant]
     Dosage: 2 DF, BID
     Route: 055
  9. ASPIRIN [Concomitant]
     Dosage: 81 MG, QD

REACTIONS (7)
  - DEATH [None]
  - BLOOD GLUCOSE INCREASED [None]
  - COUGH [None]
  - ATRIAL TACHYCARDIA [None]
  - OEDEMA PERIPHERAL [None]
  - EPISTAXIS [None]
  - HYPERTHYROIDISM [None]
